FAERS Safety Report 18827327 (Version 1)
Quarter: 2021Q1

REPORT INFORMATION
  Report Type: Spontaneous
  Country: US (occurrence: US)
  Receive Date: 20210201
  Receipt Date: 20210201
  Transmission Date: 20210419
  Serious: No
  Sender: FDA-Public Use
  Company Number: US-ABBVIE-20K-163-3238729-00

PATIENT
  Sex: Female

DRUGS (1)
  1. HUMIRA [Suspect]
     Active Substance: ADALIMUMAB
     Indication: HIDRADENITIS
     Route: 058

REACTIONS (9)
  - Irritability [Unknown]
  - Hormone level abnormal [Not Recovered/Not Resolved]
  - Hidradenitis [Not Recovered/Not Resolved]
  - Stress [Not Recovered/Not Resolved]
  - Mental disorder [Unknown]
  - Coronavirus infection [Unknown]
  - Emotional disorder [Unknown]
  - Hidradenitis [Recovered/Resolved]
  - General symptom [Unknown]

NARRATIVE: CASE EVENT DATE: 2019
